FAERS Safety Report 5139816-5 (Version None)
Quarter: 2006Q4

REPORT INFORMATION
  Report Type: 
  Country: None (occurrence: None)
  Receive Date: 20060905
  Receipt Date: 20060525
  Transmission Date: 20070319
  Serious: No
  Sender: FDA-Public Use
  Company Number: 34992

PATIENT
  Age: 76 Year
  Sex: Female
  Weight: 63.5036 kg

DRUGS (11)
  1. NEVANAC [Suspect]
     Indication: MACULAR OEDEMA
     Dosage: 1 GTT OD TID OPHT
     Route: 047
     Dates: start: 20060410, end: 20060518
  2. METFORMIN [Concomitant]
  3. GLYBURIDE [Concomitant]
  4. HYDROCHLOROTHIAZIDE [Concomitant]
  5. METOPROLOL SUCCINATE [Concomitant]
  6. LISINOPRIL [Concomitant]
  7. POTASSIUM ACETATE [Concomitant]
  8. ACTONEL [Concomitant]
  9. PROTONIX [Concomitant]
  10. AMITRIPTYLINE HCL [Concomitant]
  11. ZOCOR [Concomitant]

REACTIONS (3)
  - ASTHENIA [None]
  - BLOOD PRESSURE INCREASED [None]
  - HEADACHE [None]
